FAERS Safety Report 6119064-2 (Version None)
Quarter: 2009Q1

REPORT INFORMATION
  Report Type: 
  Country: None (occurrence: None)
  Receive Date: 20090316
  Receipt Date: 20090304
  Transmission Date: 20090719
  Serious: Yes (Other)
  Sender: FDA-Public Use
  Company Number: US-AMGEN-US336747

PATIENT
  Sex: Male

DRUGS (4)
  1. NPLATE [Suspect]
     Indication: IDIOPATHIC THROMBOCYTOPENIC PURPURA
     Dates: start: 20080904, end: 20090227
  2. CORTICOSTEROID NOS [Concomitant]
     Dates: start: 20070801
  3. IMMUNE GLOBULIN (HUMAN) [Concomitant]
     Dates: start: 20070801
  4. DANAZOL [Concomitant]
     Dates: start: 20070901

REACTIONS (2)
  - EPISTAXIS [None]
  - THROMBOCYTOPENIA [None]
